FAERS Safety Report 6848739-2 (Version None)
Quarter: 2010Q3

REPORT INFORMATION
  Report Type: 
  Country: None (occurrence: None)
  Receive Date: 20100716
  Receipt Date: 20070905
  Transmission Date: 20110219
  Serious: No
  Sender: FDA-Public Use
  Company Number: US-PFIZER INC-2007074811

PATIENT
  Sex: Female
  Weight: 100.9 kg

DRUGS (5)
  1. CHANTIX [Suspect]
     Indication: SMOKING CESSATION THERAPY
     Dates: start: 20070801
  2. LORTAB [Concomitant]
  3. DRUG, UNSPECIFIED [Concomitant]
  4. DRUG, UNSPECIFIED [Concomitant]
  5. ANTIHYPERTENSIVES [Concomitant]

REACTIONS (7)
  - FEELING ABNORMAL [None]
  - NAUSEA [None]
  - NERVOUSNESS [None]
  - PRURITUS [None]
  - RASH [None]
  - TREMOR [None]
  - WEIGHT DECREASED [None]
